FAERS Safety Report 8207203-9 (Version None)
Quarter: 2012Q1

REPORT INFORMATION
  Report Type: 
  Country: None (occurrence: None)
  Receive Date: 20120314
  Receipt Date: 20120310
  Transmission Date: 20120608
  Serious: No
  Sender: FDA-Public Use
  Company Number: US-PFIZER INC-2012063726

PATIENT
  Sex: Male
  Weight: 89.796 kg

DRUGS (3)
  1. VIAGRA [Suspect]
     Dosage: 125 MG, ALTERNATE DAY
     Route: 048
     Dates: start: 20040330
  2. INSULIN [Concomitant]
     Indication: DIABETES MELLITUS
     Dosage: 50 MG, 2X/DAY
  3. VIAGRA [Suspect]
     Indication: ERECTILE DYSFUNCTION
     Dosage: UNK
     Route: 048
     Dates: start: 20010402

REACTIONS (1)
  - TESTICULAR DISORDER [None]
